FAERS Safety Report 15728910 (Version 1)
Quarter: 2018Q4

REPORT INFORMATION
  Report Type: Spontaneous
  Country: US (occurrence: US)
  Receive Date: 20181214
  Receipt Date: 20181214
  Transmission Date: 20190205
  Serious: Yes (Other)
  Sender: FDA-Public Use
  Company Number: None

PATIENT
  Age: 45 Year
  Sex: Male
  Weight: 81 kg

DRUGS (2)
  1. TOPIRAMATE. [Concomitant]
     Active Substance: TOPIRAMATE
  2. EMGALITY [Suspect]
     Active Substance: GALCANEZUMAB-GNLM
     Indication: MIGRAINE
     Dosage: ?          QUANTITY:2 INJECTION(S);OTHER FREQUENCY:1;?
     Route: 030
     Dates: start: 20181109

REACTIONS (8)
  - Seizure [None]
  - Pruritus generalised [None]
  - Formication [None]
  - Injection related reaction [None]
  - Condition aggravated [None]
  - Inhibitory drug interaction [None]
  - Drug ineffective [None]
  - Urticaria [None]

NARRATIVE: CASE EVENT DATE: 20181112
